FAERS Safety Report 23760326 (Version 1)
Quarter: 2024Q2

REPORT INFORMATION
  Report Type: Spontaneous
  Country: US (occurrence: US)
  Receive Date: 20240419
  Receipt Date: 20240419
  Transmission Date: 20240715
  Serious: Yes (Hospitalization, Other)
  Sender: FDA-Public Use
  Company Number: US-SANDOZ-SDZ2024US039273

PATIENT
  Age: 19 Year

DRUGS (1)
  1. BUPROPION [Suspect]
     Active Substance: BUPROPION
     Indication: Product used for unknown indication
     Route: 065

REACTIONS (7)
  - Speech disorder [Unknown]
  - Disorientation [Unknown]
  - Nystagmus [Unknown]
  - Cataplexy [Unknown]
  - Agitation [Unknown]
  - Tremor [Unknown]
  - Intentional overdose [Unknown]
